FAERS Safety Report 7997845-8 (Version None)
Quarter: 2011Q4

REPORT INFORMATION
  Report Type: 
  Country: None (occurrence: None)
  Receive Date: 20111221
  Receipt Date: 20111208
  Transmission Date: 20120403
  Serious: Yes (Hospitalization)
  Sender: FDA-Public Use
  Company Number: PHHY2011FR107419

PATIENT
  Age: 55 Year
  Sex: Male

DRUGS (3)
  1. REBETOL [Suspect]
     Indication: HEPATITIS POST TRANSFUSION
     Dosage: 400 MG, BID
     Route: 048
     Dates: end: 20110508
  2. MYCOPHENOLATE MOFETIL (CELLCEPT) [Suspect]
     Indication: RENAL TRANSPLANT
     Dosage: UNK
     Route: 048
     Dates: start: 20110401, end: 20110511
  3. VALSARTAN [Suspect]
     Dosage: 80 MG, QD
     Route: 048
     Dates: end: 20110508

REACTIONS (5)
  - C-REACTIVE PROTEIN INCREASED [None]
  - PANCYTOPENIA [None]
  - HYPERTHERMIA [None]
  - BLOOD CREATININE INCREASED [None]
  - ASTHENIA [None]
